FAERS Safety Report 8575568-4 (Version None)
Quarter: 2012Q3

REPORT INFORMATION
  Report Type: 
  Country: None (occurrence: None)
  Receive Date: 20120807
  Receipt Date: 20120730
  Transmission Date: 20120928
  Serious: Yes (Hospitalization, Other)
  Sender: FDA-Public Use
  Company Number: US-US-EMD SERONO, INC.-7135067

PATIENT
  Sex: Female
  Weight: 70 kg

DRUGS (5)
  1. LEVOTHYROXINE SODIUM [Concomitant]
     Indication: HYPOTHYROIDISM
  2. ZOLOFT [Concomitant]
     Indication: DEPRESSION
  3. NUVIGIL [Concomitant]
     Indication: FATIGUE
  4. NEURONTIN [Concomitant]
     Indication: DEPRESSION
  5. REBIF [Suspect]
     Indication: MULTIPLE SCLEROSIS
     Route: 058
     Dates: start: 20120401

REACTIONS (7)
  - DEPRESSION [None]
  - PELVIC FRACTURE [None]
  - PALPITATIONS [None]
  - THORACIC VERTEBRAL FRACTURE [None]
  - MIGRAINE [None]
  - FALL [None]
  - BLOOD PRESSURE INCREASED [None]
